FAERS Safety Report 5506016-6 (Version None)
Quarter: 2007Q4

REPORT INFORMATION
  Report Type: 
  Country: None (occurrence: None)
  Receive Date: 20071101
  Receipt Date: 20071015
  Transmission Date: 20080405
  Serious: Yes (Hospitalization)
  Sender: FDA-Public Use
  Company Number: 805#1#2007-00053

PATIENT
  Age: 75 Year
  Sex: Male

DRUGS (10)
  1. ALPROSTADIL [Suspect]
     Indication: DIABETIC GANGRENE
     Dosage: 60 MCG INTRAVENOUS DRIP
     Route: 041
     Dates: start: 20070919, end: 20071003
  2. CEFAZOLIN SODIUM [Concomitant]
  3. VANCOMYCIN [Concomitant]
  4. MAGNESIUM OXIDE HEAVY (MAGNESIUM OXIDE HEAVY) [Concomitant]
  5. ETODOLAC [Concomitant]
  6. SERAPEPTASE (SERRAPEPTASE) [Concomitant]
  7. BERAPROST SODIUM (BERAPROST SODIUM) [Concomitant]
  8. BICALUTAMIDE [Concomitant]
  9. NEO MINOPHAGEN [Concomitant]
  10. LIPLE [Suspect]
     Indication: DIABETIC GANGRENE
     Dosage: 10 MCG
     Route: 042
     Dates: start: 20071004, end: 20071010

REACTIONS (2)
  - PLEURAL EFFUSION [None]
  - PULMONARY OEDEMA [None]
